FAERS Safety Report 22653172 (Version 1)
Quarter: 2023Q2

REPORT INFORMATION
  Report Type: Spontaneous
  Country: US (occurrence: US)
  Receive Date: 20230629
  Receipt Date: 20230629
  Transmission Date: 20230722
  Serious: No
  Sender: FDA-Public Use
  Company Number: US-JNJFOC-20230147649

PATIENT
  Age: 23 Year
  Sex: Female

DRUGS (9)
  1. TYLENOL REGULAR STRENGTH [Suspect]
     Active Substance: ACETAMINOPHEN
     Indication: Headache
     Dosage: STANDARD 20 COUNT, RECEIVED IN FIRST, SECOND AND THIRD TRIMESTER
     Route: 048
     Dates: start: 201704, end: 201801
  2. TYLENOL REGULAR STRENGTH [Suspect]
     Active Substance: ACETAMINOPHEN
     Indication: Pain
  3. TYLENOL EXTRA STRENGTH [Suspect]
     Active Substance: ACETAMINOPHEN
     Indication: Headache
     Dosage: STANDARD 20 COUNT, RECEIVED IN FIRST, SECOND AND THIRD TRIMESTER
     Route: 048
     Dates: start: 201704, end: 201801
  4. TYLENOL EXTRA STRENGTH [Suspect]
     Active Substance: ACETAMINOPHEN
     Indication: Pain
  5. TYLENOL [Suspect]
     Active Substance: ACETAMINOPHEN
     Indication: Nasopharyngitis
     Dosage: USUAL DOSAGE FOR ADULTS, 1 CAP FULL, WHEN FEELING SICK, FEW TIMES IN ONE WEEK.
     Route: 065
     Dates: start: 201711, end: 201712
  6. TYLENOL [Suspect]
     Active Substance: ACETAMINOPHEN
     Indication: Cough
  7. ACETAMINOPHEN [Suspect]
     Active Substance: ACETAMINOPHEN
     Indication: Analgesic therapy
     Dosage: RECEIVED IN FIRST, SECOND AND THIRD TRIMESTER
     Route: 048
     Dates: start: 201704, end: 201801
  8. ACETAMINOPHEN [Suspect]
     Active Substance: ACETAMINOPHEN
     Indication: Headache
     Dosage: RECEIVED IN FIRST, SECOND AND THIRD TRIMESTER
     Route: 048
     Dates: start: 201704, end: 201801
  9. ACETAMINOPHEN [Suspect]
     Active Substance: ACETAMINOPHEN
     Indication: Pain

REACTIONS (1)
  - Exposure during pregnancy [Unknown]

NARRATIVE: CASE EVENT DATE: 20170401
